FAERS Safety Report 24592081 (Version 3)
Quarter: 2025Q1

REPORT INFORMATION
  Report Type: Spontaneous
  Country: TW (occurrence: TW)
  Receive Date: 20241108
  Receipt Date: 20250218
  Transmission Date: 20250409
  Serious: Yes (Life-Threatening, Other)
  Sender: MERCK SHARP & DOHME LLC
  Company Number: None

PATIENT
  Age: 77 Year
  Sex: Male
  Weight: 59.2 kg

DRUGS (1)
  1. SUGAMMADEX SODIUM [Suspect]
     Active Substance: SUGAMMADEX SODIUM
     Route: 042
     Dates: start: 20241025

REACTIONS (1)
  - Cardiac arrest [Recovered/Resolved]

NARRATIVE: CASE EVENT DATE: 20241025
